FAERS Safety Report 9540530 (Version 1)
Quarter: 2013Q3

REPORT INFORMATION
  Report Type: Spontaneous
  Country: ZA (occurrence: ZA)
  Receive Date: 20130920
  Receipt Date: 20130920
  Transmission Date: 20140515
  Serious: Yes (Death)
  Sender: FDA-Public Use
  Company Number: ZA-PFIZER INC-2013267622

PATIENT
  Age: 61 Year
  Sex: Male

DRUGS (6)
  1. VFEND [Suspect]
     Indication: CANDIDA INFECTION
     Dosage: UNK
     Route: 065
     Dates: start: 20130827
  2. MAXIPIME [Concomitant]
  3. NOXAFIL [Concomitant]
  4. CANCIDAS [Concomitant]
  5. ZYVOXID [Concomitant]
  6. TYGACIL [Concomitant]

REACTIONS (1)
  - Death [Fatal]
